FAERS Safety Report 15755410 (Version 3)
Quarter: 2019Q1

REPORT INFORMATION
  Report Type: Spontaneous
  Country: US (occurrence: US)
  Receive Date: 20181224
  Receipt Date: 20190115
  Transmission Date: 20190417
  Serious: Yes (Other)
  Sender: FDA-Public Use
  Company Number: US-AMGEN-USASP2018181070

PATIENT
  Sex: Female

DRUGS (1)
  1. AIMOVIG [Suspect]
     Active Substance: ERENUMAB-AOOE
     Indication: PRODUCT USED FOR UNKNOWN INDICATION
     Dosage: UNK
     Route: 065
     Dates: start: 201810

REACTIONS (5)
  - Headache [Unknown]
  - Blood pressure abnormal [Unknown]
  - Autoimmune disorder [Unknown]
  - Constipation [Unknown]
  - Acne [Unknown]

NARRATIVE: CASE EVENT DATE: 2018
